FAERS Safety Report 7585695-6 (Version None)
Quarter: 2011Q3

REPORT INFORMATION
  Report Type: 
  Country: None (occurrence: None)
  Receive Date: 20110701
  Receipt Date: 20110620
  Transmission Date: 20111222
  Serious: Yes (Other)
  Sender: FDA-Public Use
  Company Number: US-BAYER-2011-034705

PATIENT
  Age: 28 Year
  Sex: Female
  Weight: 52.154 kg

DRUGS (3)
  1. FLUCONAZOLE [Concomitant]
  2. YAZ [Suspect]
     Indication: CONTRACEPTION
     Dosage: UNK
     Route: 048
     Dates: start: 20090101, end: 20090101
  3. YASMIN [Suspect]
     Indication: CONTRACEPTION
     Dosage: UNK
     Route: 048
     Dates: start: 20050101, end: 20090101

REACTIONS (5)
  - BLINDNESS [None]
  - VISUAL IMPAIRMENT [None]
  - INJURY [None]
  - AMAUROSIS FUGAX [None]
  - METAMORPHOPSIA [None]
